FAERS Safety Report 15002833 (Version 1)
Quarter: 2018Q2

REPORT INFORMATION
  Report Type: Spontaneous
  Country: FR (occurrence: FR)
  Receive Date: 20180612
  Receipt Date: 20180612
  Transmission Date: 20180711
  Serious: Yes (Hospitalization, Other)
  Sender: FDA-Public Use
  Company Number: FR-009507513-1806FRA003970

PATIENT
  Age: 78 Year
  Sex: Male

DRUGS (1)
  1. NORSET [Suspect]
     Active Substance: MIRTAZAPINE
     Route: 048

REACTIONS (2)
  - Renal failure [Unknown]
  - Adverse event [Unknown]
